FAERS Safety Report 6617444-X (Version None)
Quarter: 2010Q1

REPORT INFORMATION
  Report Type: 
  Country: None (occurrence: None)
  Receive Date: 20100308
  Receipt Date: 20100303
  Transmission Date: 20100710
  Serious: Yes (Other)
  Sender: FDA-Public Use
  Company Number: GXKR2010DE00984

PATIENT
  Sex: Female
  Weight: 65 kg

DRUGS (6)
  1. SIMVAHEXAL (NGX) [Suspect]
     Indication: HYPERCHOLESTEROLAEMIA
     Dosage: 20 MG, QD
     Route: 048
     Dates: start: 20061101, end: 20090801
  2. GLIMEPIRIDE [Concomitant]
     Indication: DIABETES MELLITUS
     Dosage: 1 MG, UNK
     Route: 048
  3. ACETYLSALICYLIC ACID [Concomitant]
     Route: 048
  4. DICLOFENAC [Concomitant]
     Dosage: UNK
     Route: 065
  5. MEDIABET [Concomitant]
     Indication: DIABETES MELLITUS
     Dosage: 500 MG, BID
     Route: 048
  6. LISINOPRIL [Concomitant]
     Indication: HYPERTENSION
     Dosage: 10 MG, QD

REACTIONS (4)
  - ASTHENIA [None]
  - HAEMATOMA [None]
  - MUSCLE RUPTURE [None]
  - MYALGIA [None]
